FAERS Safety Report 7229696-6 (Version None)
Quarter: 2011Q1

REPORT INFORMATION
  Report Type: 
  Country: None (occurrence: None)
  Receive Date: 20110117
  Receipt Date: 20110111
  Transmission Date: 20110831
  Serious: Yes (Hospitalization)
  Sender: FDA-Public Use
  Company Number: US-JNJFOC-20110102731

PATIENT
  Sex: Female

DRUGS (16)
  1. DURAGESIC-50 [Suspect]
     Indication: ARTHRITIS
     Route: 062
  2. UNSPECIFIED TRAMADOL [Suspect]
     Indication: INTERVERTEBRAL DISC PROTRUSION
     Dosage: 2 TABLETS AS NEEDED
     Route: 048
  3. DURAGESIC-50 [Suspect]
     Indication: BACK PAIN
     Route: 062
  4. UNSPECIFIED TRAMADOL [Suspect]
     Indication: ARTHRITIS
     Dosage: 2 TABLETS AS NEEDED
     Route: 048
  5. DURAGESIC-50 [Suspect]
     Dosage: 100 UG/HR+25 UG/HR
     Route: 062
  6. FENTANYL-100 [Suspect]
     Indication: INTERVERTEBRAL DISC PROTRUSION
     Dosage: 100 UG/HR+ 25 UG/HR
     Route: 062
  7. DURAGESIC-50 [Suspect]
     Dosage: 100 UG/HR+25 UG/HR
     Route: 062
  8. DURAGESIC-50 [Suspect]
     Dosage: 100 UG/HR+25 UG/HR
     Route: 062
  9. DURAGESIC-50 [Suspect]
     Dosage: 100 UG/HR+25 UG/HR
     Route: 062
  10. DURAGESIC-50 [Suspect]
     Indication: INTERVERTEBRAL DISC PROTRUSION
     Route: 062
  11. DURAGESIC-50 [Suspect]
     Indication: FIBROMYALGIA
     Route: 062
  12. UNSPECIFIED TRAMADOL [Suspect]
     Indication: BACK PAIN
     Dosage: 2 TABLETS AS NEEDED
     Route: 048
  13. FENTANYL-100 [Suspect]
     Indication: ARTHRITIS
     Dosage: 100 UG/HR+ 25 UG/HR
     Route: 062
  14. FENTANYL-100 [Suspect]
     Indication: BACK PAIN
     Dosage: 100 UG/HR+ 25 UG/HR
     Route: 062
  15. FENTANYL-100 [Suspect]
     Indication: FIBROMYALGIA
     Dosage: 100 UG/HR+ 25 UG/HR
     Route: 062
  16. UNSPECIFIED TRAMADOL [Suspect]
     Indication: FIBROMYALGIA
     Dosage: 2 TABLETS AS NEEDED
     Route: 048

REACTIONS (2)
  - MYOCARDIAL INFARCTION [None]
  - MEMORY IMPAIRMENT [None]
